FAERS Safety Report 13560536 (Version 1)
Quarter: 2017Q2

REPORT INFORMATION
  Report Type: Spontaneous
  Country: IN (occurrence: IN)
  Receive Date: 20170518
  Receipt Date: 20170518
  Transmission Date: 20170830
  Serious: Yes (Other)
  Sender: FDA-Public Use
  Company Number: IN-FRESENIUS KABI-FK201704023

PATIENT
  Age: 40 Year
  Sex: Female

DRUGS (3)
  1. CISPLATIN (MANUFACTURER UNKNOWN) [Suspect]
     Active Substance: CISPLATIN
     Indication: SQUAMOUS CELL CARCINOMA OF THE VAGINA
     Route: 065
     Dates: end: 2013
  2. FLUOROURACIL (MANUFACTURER UNKNOWN) [Suspect]
     Active Substance: FLUOROURACIL
     Indication: SQUAMOUS CELL CARCINOMA OF THE VAGINA
     Route: 065
     Dates: end: 2013
  3. BLEOMYCIN [Suspect]
     Active Substance: BLEOMYCIN SULFATE
     Indication: SQUAMOUS CELL CARCINOMA OF THE VAGINA
     Route: 042
     Dates: end: 2013

REACTIONS (2)
  - Acute myeloid leukaemia [Unknown]
  - Off label use [Unknown]
